FAERS Safety Report 10774106 (Version 1)
Quarter: 2015Q1

REPORT INFORMATION
  Report Type: Other
  Country: US (occurrence: US)
  Receive Date: 20150208
  Receipt Date: 20150208
  Transmission Date: 20150721
  Serious: No
  Sender: FDA-Public Use
  Company Number: US-ACORDA-ACO_22711_2011

PATIENT
  Age: 55 Year
  Sex: Female
  Weight: 63.49 kg

DRUGS (1)
  1. AMPYRA [Suspect]
     Active Substance: DALFAMPRIDINE
     Indication: GAIT DISTURBANCE
     Dosage: 10 MG, BID
     Route: 048
     Dates: start: 20101208

REACTIONS (3)
  - Blister [Recovering/Resolving]
  - Hypersensitivity [Unknown]
  - Headache [Unknown]

NARRATIVE: CASE EVENT DATE: 201103
